FAERS Safety Report 24353099 (Version 1)
Quarter: 2024Q3

REPORT INFORMATION
  Report Type: Spontaneous
  Country: US (occurrence: None)
  Receive Date: 20240923
  Receipt Date: 20240923
  Transmission Date: 20241017
  Serious: Yes (Other)
  Sender: Public
  Company Number: None

PATIENT
  Age: 31 Year
  Sex: Female
  Weight: 48.6 kg

DRUGS (1)
  1. MONISTAT 1 COMBINATION PACK [Suspect]
     Active Substance: MICONAZOLE NITRATE
     Indication: Fungal infection
     Dosage: OTHER QUANTITY : 1 INSERT;?OTHER FREQUENCY : 1 DOSE DAY OR NIGH;?
     Route: 067

REACTIONS (2)
  - Burning sensation [None]
  - Product quality issue [None]

NARRATIVE: CASE EVENT DATE: 20240923
